FAERS Safety Report 24143257 (Version 1)
Quarter: 2024Q3

REPORT INFORMATION
  Report Type: Spontaneous
  Country: CN (occurrence: CN)
  Receive Date: 20240726
  Receipt Date: 20240726
  Transmission Date: 20241017
  Serious: Yes (Other)
  Sender: GE HEALTHCARE
  Company Number: CN-GE HEALTHCARE-2024CSU008192

PATIENT
  Age: 61 Year
  Sex: Male
  Weight: 80 kg

DRUGS (3)
  1. OMNIPAQUE [Suspect]
     Active Substance: IOHEXOL
     Indication: Angiogram cerebral
     Dosage: 150 ML, TOTAL
     Route: 013
     Dates: start: 20240712, end: 20240712
  2. OMNIPAQUE [Suspect]
     Active Substance: IOHEXOL
     Indication: Arterial angioplasty
  3. OMNIPAQUE [Suspect]
     Active Substance: IOHEXOL
     Indication: Arterial stent insertion

REACTIONS (2)
  - Vertebrobasilar stroke [Recovered/Resolved]
  - Contrast encephalopathy [Recovered/Resolved]

NARRATIVE: CASE EVENT DATE: 20240712
